FAERS Safety Report 18898883 (Version 2)
Quarter: 2021Q1

REPORT INFORMATION
  Report Type: Spontaneous
  Country: BE (occurrence: BE)
  Receive Date: 20210216
  Receipt Date: 20210324
  Transmission Date: 20210420
  Serious: Yes (Hospitalization, Other)
  Sender: FDA-Public Use
  Company Number: BE-ASTRAZENECA-2021A049042

PATIENT
  Age: 56 Year
  Sex: Female
  Weight: 35 kg

DRUGS (15)
  1. RELVAR [Concomitant]
     Active Substance: FLUTICASONE FUROATE\VILANTEROL TRIFENATATE
     Indication: ASTHMA
     Dosage: 184/22 MCG 1 TIME PER DAY IN THE MORNING
     Route: 055
     Dates: start: 2017
  2. AZITHROMYCINE [Concomitant]
     Active Substance: AZITHROMYCIN
     Indication: ASTHMA
     Route: 048
  3. LYRICA [Concomitant]
     Active Substance: PREGABALIN
  4. FASENRA [Suspect]
     Active Substance: BENRALIZUMAB
     Indication: ASTHMA
     Dosage: 30.0MG UNKNOWN
     Route: 058
     Dates: start: 20200616, end: 20201231
  5. MONTELUKAST [Concomitant]
     Active Substance: MONTELUKAST SODIUM
  6. DIAZEPAM. [Concomitant]
     Active Substance: DIAZEPAM
     Dosage: BEFORE GOING TO BED
  7. AZITHROMYCINE [Concomitant]
     Active Substance: AZITHROMYCIN
     Indication: ASTHMA
     Dosage: 500 MG ON MONDAY, WEDNESDAY, FRIDAY
     Route: 048
  8. FOLAVIT [Concomitant]
     Active Substance: FOLIC ACID
     Dosage: IN THE EVENING
  9. MOMETASONE [Concomitant]
     Active Substance: MOMETASONE
     Indication: ASTHMA
     Dosage: 4 TIMES 3 DROPS A DAY
     Route: 045
     Dates: start: 2019
  10. ACETYLCYSTEINE. [Concomitant]
     Active Substance: ACETYLCYSTEINE
  11. FLUMICIL [Concomitant]
     Dosage: IN THE MORNING
  12. DUOVENT [Concomitant]
     Active Substance: FENOTEROL HYDROBROMIDE
     Dosage: AS REQUIRED
  13. ASA [Concomitant]
     Active Substance: ASPIRIN
  14. D?CURE [Concomitant]
     Active Substance: CHOLECALCIFEROL
     Dosage: ONCE A WEEK
  15. LYRICA [Concomitant]
     Active Substance: PREGABALIN

REACTIONS (4)
  - Nervous system disorder [Unknown]
  - Polyneuropathy [Unknown]
  - Off label use [Recovered/Resolved]
  - Eosinophilic granulomatosis with polyangiitis [Recovered/Resolved with Sequelae]
